FAERS Safety Report 21332441 (Version 1)
Quarter: 2022Q3

REPORT INFORMATION
  Report Type: Spontaneous
  Country: US (occurrence: None)
  Receive Date: 20220913
  Receipt Date: 20220913
  Transmission Date: 20221026
  Serious: No
  Sender: FDA-Public Use
  Company Number: None

PATIENT
  Age: 4 Year
  Sex: Male
  Weight: 17.55 kg

DRUGS (1)
  1. WAL-ITIN [Suspect]
     Active Substance: LORATADINE

REACTIONS (2)
  - Product packaging confusion [None]
  - Product storage error [None]

NARRATIVE: CASE EVENT DATE: 20220913
